FAERS Safety Report 24928221 (Version 1)
Quarter: 2025Q1

REPORT INFORMATION
  Report Type: Spontaneous
  Country: US (occurrence: None)
  Receive Date: 20250205
  Receipt Date: 20250205
  Transmission Date: 20250409
  Serious: Yes (Hospitalization)
  Sender: FDA-CTU
  Company Number: None

PATIENT
  Sex: Female

DRUGS (5)
  1. OPSUMIT [Suspect]
     Active Substance: MACITENTAN
     Indication: Pulmonary arterial hypertension
     Dosage: FREQUENCY : DAILY;?
     Route: 048
     Dates: start: 201611
  2. DEFERASIROX [Concomitant]
     Active Substance: DEFERASIROX
  3. REMODULIN [Suspect]
     Active Substance: TREPROSTINIL
  4. DEVICE [Concomitant]
     Active Substance: DEVICE
  5. STERILE DILUENT (WATER) [Concomitant]
     Active Substance: WATER

REACTIONS (1)
  - Sickle cell disease [None]
